FAERS Safety Report 9352037 (Version 2)
Quarter: 2013Q3

REPORT INFORMATION
  Report Type: Report from Study
  Country: JP (occurrence: JP)
  Receive Date: 20130617
  Receipt Date: 20130808
  Transmission Date: 20140515
  Serious: Yes (Hospitalization)
  Sender: FDA-Public Use
  Company Number: JP-FRI-1000045949

PATIENT
  Age: 68 Year
  Sex: Male

DRUGS (4)
  1. ACLIDINIUM [Suspect]
     Indication: CHRONIC OBSTRUCTIVE PULMONARY DISEASE
     Dosage: 2 DF
     Route: 055
     Dates: start: 20121113
  2. SYMBICORT TURBUHALER [Concomitant]
     Dosage: 4 PUFFS
     Route: 055
     Dates: start: 20120910
  3. DEPAS [Concomitant]
     Dosage: 1.5 MG
     Route: 048
     Dates: start: 20120908
  4. SULTANOL [Concomitant]
     Dosage: 2 PUFFS AS NEEDED
     Route: 055
     Dates: start: 20121031

REACTIONS (1)
  - Pneumonia [Recovering/Resolving]
